FAERS Safety Report 9807844 (Version 2)
Quarter: 2014Q2

REPORT INFORMATION
  Report Type: Spontaneous
  Country: GB (occurrence: GB)
  Receive Date: 20140110
  Receipt Date: 20140429
  Transmission Date: 20141212
  Serious: Yes (Other)
  Sender: FDA-Public Use
  Company Number: GB-TEVA-454376ISR

PATIENT
  Age: 55 Year
  Sex: Female

DRUGS (1)
  1. ERYTHROMYCIN [Suspect]
     Indication: LOWER RESPIRATORY TRACT INFECTION
     Route: 048
     Dates: start: 20120719

REACTIONS (17)
  - Hyperthyroidism [Unknown]
  - Blood thyroid stimulating hormone decreased [Recovering/Resolving]
  - Palpitations [Unknown]
  - Weight fluctuation [Unknown]
  - Hyperhidrosis [Unknown]
  - Lethargy [Unknown]
  - Headache [Unknown]
  - Paraesthesia [Unknown]
  - Feeling hot [Unknown]
  - Agitation [Unknown]
  - Chest discomfort [Unknown]
  - Malaise [Unknown]
  - Nausea [Unknown]
  - Tremor [Unknown]
  - Pollakiuria [Unknown]
  - Asthenia [Unknown]
  - Fatigue [Unknown]
